FAERS Safety Report 8839165 (Version 1)
Quarter: 2012Q4

REPORT INFORMATION
  Report Type: 
  Country: US (occurrence: US)
  Receive Date: 20121015
  Receipt Date: 20121015
  Transmission Date: 20130627
  Serious: No
  Sender: FDA-Public Use
  Company Number: US-B.I. PHARMACEUTICALS,INC./RIDGEFIELD-2012-BP-24349BP

PATIENT
  Sex: Male

DRUGS (6)
  1. PRADAXA [Suspect]
     Indication: CEREBROVASCULAR ACCIDENT PROPHYLAXIS
     Dosage: 300 mg
     Route: 048
  2. PRADAXA [Suspect]
     Indication: ATRIAL FIBRILLATION
  3. LISINOPRIL [Concomitant]
  4. METOPROLOL [Concomitant]
  5. VOLTAREN [Concomitant]
  6. DIGOXIN [Concomitant]

REACTIONS (3)
  - Swelling [Unknown]
  - Fluid retention [Unknown]
  - Glomerular filtration rate decreased [Unknown]
